FAERS Safety Report 23631847 (Version 1)
Quarter: 2024Q1

REPORT INFORMATION
  Report Type: Spontaneous
  Country: US (occurrence: US)
  Receive Date: 20240314
  Receipt Date: 20240314
  Transmission Date: 20240410
  Serious: Yes (Other)
  Sender: FDA-Public Use
  Company Number: US-PHARMAAND GMBH-2024PHR00244

PATIENT
  Sex: Female

DRUGS (1)
  1. RUBRACA [Suspect]
     Active Substance: RUCAPARIB CAMSYLATE
     Indication: Endometrial cancer
     Dosage: 600 MG TWICE DAILY
     Route: 048
     Dates: start: 2020, end: 202305

REACTIONS (6)
  - Myocardial infarction [Recovered/Resolved]
  - Abdominal wall neoplasm [Unknown]
  - Pulmonary mass [Unknown]
  - Vaginal disorder [Unknown]
  - Nodule [Unknown]
  - Off label use [Recovered/Resolved]

NARRATIVE: CASE EVENT DATE: 20200101
